FAERS Safety Report 12900807 (Version 2)
Quarter: 2016Q4

REPORT INFORMATION
  Report Type: Report from Study
  Country: IE (occurrence: IE)
  Receive Date: 20161101
  Receipt Date: 20161225
  Transmission Date: 20170207
  Serious: Yes (Other)
  Sender: FDA-Public Use
  Company Number: PHFR2016IE008666

PATIENT
  Age: 70 Year
  Sex: Male

DRUGS (6)
  1. SALBUTAMOL [Concomitant]
     Active Substance: ALBUTEROL
     Indication: RESPIRATORY DISORDER
     Dosage: 2.5MG/2.5ML, BID AS REQUIRED
     Route: 055
     Dates: start: 20140814
  2. ZITHROMAX [Concomitant]
     Active Substance: AZITHROMYCIN DIHYDRATE
     Indication: RESPIRATORY DISORDER
     Dosage: 250 MG, ALTERNATE DAYS
     Route: 048
     Dates: start: 20120417
  3. QUININE [Concomitant]
     Active Substance: QUININE
     Indication: RESTLESS LEGS SYNDROME
     Dosage: 30 MG, QHS
     Route: 048
     Dates: start: 20120315
  4. SINGULAIR [Concomitant]
     Active Substance: MONTELUKAST SODIUM
     Indication: RESPIRATORY DISORDER
     Dosage: 10 MG, QD
     Route: 048
     Dates: start: 20120315
  5. NASONEX [Concomitant]
     Active Substance: MOMETASONE FUROATE
     Indication: RHINITIS ALLERGIC
     Dosage: 50 UG, BID
     Route: 065
  6. ULTIBRO BREEZHALER [Suspect]
     Active Substance: GLYCOPYRRONIUM\INDACATEROL
     Indication: RESPIRATORY DISORDER
     Dosage: 1 DF, UNK
     Route: 055

REACTIONS (5)
  - Stomatitis [Recovered/Resolved]
  - Eczema [Recovered/Resolved]
  - Product use issue [Unknown]
  - Chest discomfort [Recovered/Resolved]
  - Respiratory tract infection [Recovered/Resolved]

NARRATIVE: CASE EVENT DATE: 20160209
